FAERS Safety Report 9120965 (Version 1)
Quarter: 2013Q1

REPORT INFORMATION
  Report Type: Spontaneous
  Country: FR (occurrence: FR)
  Receive Date: 20130226
  Receipt Date: 20130226
  Transmission Date: 20140127
  Serious: Yes (Other)
  Sender: FDA-Public Use
  Company Number: FR-ROCHE-1194206

PATIENT
  Age: 25 Year
  Sex: Male

DRUGS (3)
  1. XOLAIR [Suspect]
     Indication: ASTHMA
     Route: 042
     Dates: start: 2011
  2. SERETIDE DISKUS [Concomitant]
     Dosage: 500/50 UG
     Route: 065
  3. AERIUS [Concomitant]

REACTIONS (3)
  - Musculoskeletal chest pain [Not Recovered/Not Resolved]
  - Balance disorder [Not Recovered/Not Resolved]
  - Influenza like illness [Not Recovered/Not Resolved]
